FAERS Safety Report 19252209 (Version 4)
Quarter: 2021Q2

REPORT INFORMATION
  Report Type: Report from Study
  Country: None (occurrence: SE)
  Receive Date: 20210513
  Receipt Date: 20210629
  Transmission Date: 20210717
  Serious: Yes (Hospitalization, Other)
  Sender: FDA-Public Use
  Company Number: SE-ABBVIE-21K-150-3895080-00

PATIENT
  Age: 80 Year
  Sex: Female

DRUGS (2)
  1. DUODOPA [Suspect]
     Active Substance: CARBIDOPA\LEVODOPA
     Dosage: CURRENT DOSAGE: MORNING DOSE: 1.8 ML, CONTINUOUS DOSE DAY: 4.8 ML/H, EXTRA DOSE: 1.8 ML.
     Route: 050
     Dates: start: 20210617
  2. DUODOPA [Suspect]
     Active Substance: CARBIDOPA\LEVODOPA
     Indication: PARKINSON^S DISEASE
     Dosage: THERAPY DURATION: REMAINS AT 24H
     Route: 050
     Dates: start: 20150112

REACTIONS (14)
  - Hospitalisation [Not Recovered/Not Resolved]
  - Fall [Recovering/Resolving]
  - Device dislocation [Recovered/Resolved]
  - Joint dislocation [Unknown]
  - Pain [Unknown]
  - C-reactive protein increased [Unknown]
  - Fatigue [Unknown]
  - Pelvic fracture [Recovering/Resolving]
  - Device alarm issue [Unknown]
  - Device breakage [Unknown]
  - Unintentional medical device removal [Recovered/Resolved]
  - Hip fracture [Recovering/Resolving]
  - Infection [Unknown]
  - Confusional state [Unknown]

NARRATIVE: CASE EVENT DATE: 20210505
